FAERS Safety Report 8896552 (Version 5)
Quarter: 2013Q1

REPORT INFORMATION
  Report Type: Report from Study
  Country: JP (occurrence: JP)
  Receive Date: 20121108
  Receipt Date: 20130104
  Transmission Date: 20140127
  Serious: Yes (Hospitalization)
  Sender: FDA-Public Use
  Company Number: JP-ABBOTT-10P-087-0685584-00

PATIENT
  Age: 65 Year
  Sex: Male
  Weight: 50.6 kg

DRUGS (13)
  1. HUMIRA [Suspect]
     Indication: BEHCET^S SYNDROME
     Route: 058
     Dates: end: 20120924
  2. SALAZOPYRIN [Concomitant]
     Indication: BEHCET^S SYNDROME
     Route: 048
     Dates: start: 20101102
  3. BIO-THREE [Concomitant]
     Indication: GASTROINTESTINAL DISORDER
     Route: 048
     Dates: start: 20100722
  4. PREDNISOLONE [Concomitant]
     Indication: BEHCET^S SYNDROME
     Route: 048
     Dates: start: 20101103, end: 20110214
  5. PREDNISOLONE [Concomitant]
     Route: 048
     Dates: start: 20050510, end: 20101102
  6. PARIET [Concomitant]
     Indication: PROPHYLAXIS AGAINST GASTROINTESTINAL ULCER
     Route: 048
     Dates: start: 20100308
  7. PLETAAL [Concomitant]
     Indication: THROMBOPHLEBITIS
     Route: 048
     Dates: start: 20020527, end: 20121001
  8. PLETAAL [Concomitant]
     Route: 048
     Dates: start: 20121007
  9. SLAMA [Concomitant]
     Indication: BEHCET^S SYNDROME
     Route: 048
     Dates: start: 20100722, end: 20101101
  10. WARFARIN [Concomitant]
     Indication: THROMBOPHLEBITIS
     Route: 048
     Dates: start: 20101004, end: 20121001
  11. WARFARIN [Concomitant]
     Route: 048
     Dates: start: 20121017
  12. MAGNESIUM OXIDE [Concomitant]
     Indication: CONSTIPATION
     Route: 048
     Dates: start: 20110905
  13. FERO-GRADUMET [Concomitant]
     Indication: IRON DEFICIENCY ANAEMIA
     Route: 048
     Dates: start: 20120605, end: 20121001

REACTIONS (5)
  - Behcet^s syndrome [Recovered/Resolved]
  - Appendicitis perforated [Recovered/Resolved]
  - Abscess intestinal [Recovered/Resolved]
  - Large intestine polyp [Recovered/Resolved]
  - Appendicitis [Recovered/Resolved]
